FAERS Safety Report 16313338 (Version 2)
Quarter: 2019Q2

REPORT INFORMATION
  Report Type: Spontaneous
  Country: JP (occurrence: JP)
  Receive Date: 20190515
  Receipt Date: 20190603
  Transmission Date: 20190711
  Serious: No
  Sender: FDA-Public Use
  Company Number: JP-TEVA-2019-JP-002755J

PATIENT
  Age: 98 Year
  Sex: Female

DRUGS (6)
  1. DIAZEPAM INJECTION 10MG TAIYO [Suspect]
     Active Substance: DIAZEPAM
     Dosage: 5 MILLIGRAM DAILY;
     Route: 040
     Dates: start: 20190508, end: 20190508
  2. AMLODIPINE [Concomitant]
     Active Substance: AMLODIPINE BESYLATE
     Route: 065
  3. OMEPRAZOLE. [Concomitant]
     Active Substance: OMEPRAZOLE
     Route: 065
  4. ELIQUIS [Concomitant]
     Active Substance: APIXABAN
     Route: 065
  5. DIAZEPAM INJECTION 10MG TAIYO [Suspect]
     Active Substance: DIAZEPAM
     Indication: SEIZURE
     Dosage: 15 MILLIGRAM DAILY;
     Route: 040
     Dates: start: 20190507, end: 20190507
  6. SELENICA-R [Concomitant]
     Active Substance: VALPROATE SODIUM
     Route: 065

REACTIONS (1)
  - Therapeutic response shortened [Unknown]
